FAERS Safety Report 4774154-1 (Version None)
Quarter: 2005Q3

REPORT INFORMATION
  Report Type: 
  Country: None (occurrence: None)
  Receive Date: 20050914
  Receipt Date: 20050401
  Transmission Date: 20060218
  Serious: Yes (Other)
  Sender: FDA-Public Use
  Company Number: 163-20785-05040185

PATIENT
  Sex: 0

DRUGS (1)
  1. THALIDOMIDE (THALIDOMIDE) (CAPSULES) [Suspect]
     Indication: CHRONIC LYMPHOCYTIC LEUKAEMIA
     Dosage: 200MG ON DAYS 1 TO 14 INCREASING BY 200MG EVERY 2 WKS UP TO 100MG, DAILY, ORAL
     Route: 048
     Dates: start: 20010207

REACTIONS (2)
  - INFECTION [None]
  - PLATELET COUNT DECREASED [None]
